FAERS Safety Report 25773285 (Version 3)
Quarter: 2025Q3

REPORT INFORMATION
  Report Type: Spontaneous
  Country: EU (occurrence: EU)
  Receive Date: 20250908
  Receipt Date: 20250930
  Transmission Date: 20251020
  Serious: Yes (Hospitalization)
  Sender: MYLAN
  Company Number: EU-CHEPLA-2025010149

PATIENT
  Age: 64 Year
  Sex: Male

DRUGS (44)
  1. PREDNISONE [Suspect]
     Active Substance: PREDNISONE
     Indication: Extranodal marginal zone B-cell lymphoma (MALT type)
  2. PREDNISONE [Suspect]
     Active Substance: PREDNISONE
     Route: 065
  3. PREDNISONE [Suspect]
     Active Substance: PREDNISONE
     Route: 065
  4. PREDNISONE [Suspect]
     Active Substance: PREDNISONE
  5. CAPECITABINE [Suspect]
     Active Substance: CAPECITABINE
     Indication: Adenocarcinoma gastric
  6. CAPECITABINE [Suspect]
     Active Substance: CAPECITABINE
     Indication: Metastases to lymph nodes
  7. CAPECITABINE [Suspect]
     Active Substance: CAPECITABINE
     Indication: Metastases to bone
     Route: 065
  8. CAPECITABINE [Suspect]
     Active Substance: CAPECITABINE
     Route: 065
  9. CAPECITABINE [Suspect]
     Active Substance: CAPECITABINE
  10. CAPECITABINE [Suspect]
     Active Substance: CAPECITABINE
  11. CAPECITABINE [Suspect]
     Active Substance: CAPECITABINE
     Route: 065
  12. CAPECITABINE [Suspect]
     Active Substance: CAPECITABINE
     Route: 065
  13. CAPECITABINE [Suspect]
     Active Substance: CAPECITABINE
  14. CAPECITABINE [Suspect]
     Active Substance: CAPECITABINE
     Route: 065
  15. CAPECITABINE [Suspect]
     Active Substance: CAPECITABINE
  16. CAPECITABINE [Suspect]
     Active Substance: CAPECITABINE
     Route: 065
  17. OXALIPLATIN [Suspect]
     Active Substance: OXALIPLATIN
     Indication: Adenocarcinoma gastric
  18. OXALIPLATIN [Suspect]
     Active Substance: OXALIPLATIN
     Route: 065
  19. OXALIPLATIN [Suspect]
     Active Substance: OXALIPLATIN
     Route: 065
  20. OXALIPLATIN [Suspect]
     Active Substance: OXALIPLATIN
  21. IRINOTECAN [Suspect]
     Active Substance: IRINOTECAN
     Indication: Metastases to lymph nodes
  22. IRINOTECAN [Suspect]
     Active Substance: IRINOTECAN
     Indication: Metastases to bone
  23. IRINOTECAN [Suspect]
     Active Substance: IRINOTECAN
     Indication: Adenocarcinoma gastric
     Route: 065
  24. IRINOTECAN [Suspect]
     Active Substance: IRINOTECAN
     Route: 065
  25. IRINOTECAN [Suspect]
     Active Substance: IRINOTECAN
  26. IRINOTECAN [Suspect]
     Active Substance: IRINOTECAN
  27. IRINOTECAN [Suspect]
     Active Substance: IRINOTECAN
     Route: 065
  28. IRINOTECAN [Suspect]
     Active Substance: IRINOTECAN
     Route: 065
  29. DOXORUBICIN [Suspect]
     Active Substance: DOXORUBICIN
     Indication: Extranodal marginal zone B-cell lymphoma (MALT type)
  30. DOXORUBICIN [Suspect]
     Active Substance: DOXORUBICIN
     Route: 065
  31. DOXORUBICIN [Suspect]
     Active Substance: DOXORUBICIN
     Route: 065
  32. DOXORUBICIN [Suspect]
     Active Substance: DOXORUBICIN
  33. RITUXIMAB [Suspect]
     Active Substance: RITUXIMAB
     Indication: Extranodal marginal zone B-cell lymphoma (MALT type)
  34. RITUXIMAB [Suspect]
     Active Substance: RITUXIMAB
     Route: 065
  35. RITUXIMAB [Suspect]
     Active Substance: RITUXIMAB
     Route: 065
  36. RITUXIMAB [Suspect]
     Active Substance: RITUXIMAB
  37. CYCLOPHOSPHAMIDE [Suspect]
     Active Substance: CYCLOPHOSPHAMIDE
     Indication: Extranodal marginal zone B-cell lymphoma (MALT type)
  38. CYCLOPHOSPHAMIDE [Suspect]
     Active Substance: CYCLOPHOSPHAMIDE
     Route: 065
  39. CYCLOPHOSPHAMIDE [Suspect]
     Active Substance: CYCLOPHOSPHAMIDE
     Route: 065
  40. CYCLOPHOSPHAMIDE [Suspect]
     Active Substance: CYCLOPHOSPHAMIDE
  41. VINCRISTINE [Suspect]
     Active Substance: VINCRISTINE
     Indication: Extranodal marginal zone B-cell lymphoma (MALT type)
  42. VINCRISTINE [Suspect]
     Active Substance: VINCRISTINE
     Route: 065
  43. VINCRISTINE [Suspect]
     Active Substance: VINCRISTINE
     Route: 065
  44. VINCRISTINE [Suspect]
     Active Substance: VINCRISTINE

REACTIONS (7)
  - Peripheral ischaemia [Not Recovered/Not Resolved]
  - Skin ulcer [Unknown]
  - Toxicity to various agents [Unknown]
  - Inflammation [Unknown]
  - Paronychia [Unknown]
  - Extremity necrosis [Unknown]
  - Off label use [Unknown]

NARRATIVE: CASE EVENT DATE: 20220101
